FAERS Safety Report 20635640 (Version 1)
Quarter: 2022Q1

REPORT INFORMATION
  Report Type: Spontaneous
  Country: CN (occurrence: CN)
  Receive Date: 20220325
  Receipt Date: 20220325
  Transmission Date: 20220423
  Serious: Yes (Life-Threatening)
  Sender: FDA-Public Use
  Company Number: CN-SA-SAC20220323002201

PATIENT
  Age: 90 Year
  Sex: Male
  Weight: 65 kg

DRUGS (4)
  1. CLOPIDOGREL BISULFATE [Suspect]
     Active Substance: CLOPIDOGREL BISULFATE
     Dosage: 75 MG, QD
     Route: 048
     Dates: start: 20220302, end: 20220320
  2. RIVAROXABAN [Suspect]
     Active Substance: RIVAROXABAN
     Indication: Arteriosclerosis coronary artery
     Dosage: 15 MG, QD
     Route: 048
     Dates: start: 20220302, end: 20220316
  3. ATORVASTATIN CALCIUM [Concomitant]
     Active Substance: ATORVASTATIN CALCIUM
     Route: 048
     Dates: start: 20220302, end: 20220318
  4. METOPROLOL SUCCINATE [Concomitant]
     Active Substance: METOPROLOL SUCCINATE
     Indication: Arteriosclerosis coronary artery
     Route: 048
     Dates: start: 20220302, end: 20220318

REACTIONS (1)
  - Coagulation time prolonged [Recovering/Resolving]

NARRATIVE: CASE EVENT DATE: 20220317
